FAERS Safety Report 14996225 (Version 2)
Quarter: 2018Q3

REPORT INFORMATION
  Report Type: Spontaneous
  Country: US (occurrence: US)
  Receive Date: 20180611
  Receipt Date: 20180813
  Transmission Date: 20181010
  Serious: Yes (Other)
  Sender: FDA-Public Use
  Company Number: US-SA-2018SA151953

PATIENT
  Sex: Female

DRUGS (2)
  1. DUPIXENT [Suspect]
     Active Substance: DUPILUMAB
     Dosage: UNK, QOW
     Route: 058
     Dates: start: 20180513
  2. DUPIXENT [Suspect]
     Active Substance: DUPILUMAB
     Indication: DERMATITIS ATOPIC
     Dosage: UNK, QOW
     Route: 058
     Dates: start: 20171013

REACTIONS (5)
  - Blindness transient [Recovered/Resolved]
  - Eye irritation [Unknown]
  - Pruritus [Unknown]
  - Drug dose omission [Unknown]
  - Product use issue [Unknown]
